FAERS Safety Report 14719750 (Version 1)
Quarter: 2018Q1

REPORT INFORMATION
  Report Type: Spontaneous
  Country: US (occurrence: US)
  Receive Date: 20180330
  Receipt Date: 20180330
  Transmission Date: 20180509
  Serious: Yes (Life-Threatening, Hospitalization)
  Sender: FDA-Public Use
  Company Number: None

PATIENT
  Age: 71 Year
  Sex: Female
  Weight: 54 kg

DRUGS (1)
  1. HUMALOG [Suspect]
     Active Substance: INSULIN LISPRO
     Indication: TYPE 1 DIABETES MELLITUS
     Dosage: ?          QUANTITY:100 INJECTION(S);?
     Route: 058
     Dates: start: 20180307, end: 20180309

REACTIONS (4)
  - Drug ineffective [None]
  - Blood glucose increased [None]
  - Confusional state [None]
  - Coma [None]

NARRATIVE: CASE EVENT DATE: 20180310
